FAERS Safety Report 20601166 (Version 2)
Quarter: 2022Q1

REPORT INFORMATION
  Report Type: Other
  Country: FR (occurrence: FR)
  Receive Date: 20220316
  Receipt Date: 20220318
  Transmission Date: 20220423
  Serious: Yes (Hospitalization, Other)
  Sender: FDA-Public Use
  Company Number: None

PATIENT
  Age: 44 Year
  Sex: Male
  Weight: 58 kg

DRUGS (9)
  1. PROGRAF [Suspect]
     Active Substance: TACROLIMUS
     Indication: Prophylaxis against transplant rejection
     Dosage: 3 MG, ONCE DAILY (LONG-TERM TREATMENT)
     Route: 048
  2. CELLCEPT [Suspect]
     Active Substance: MYCOPHENOLATE MOFETIL
     Indication: Prophylaxis against transplant rejection
     Dosage: 1000 MG, ONCE DAILY (LONG TERM TREATMENT)
     Route: 048
  3. PREDNISONE [Suspect]
     Active Substance: PREDNISONE
     Indication: Prophylaxis against transplant rejection
     Dosage: 1 DF, ONCE DAILY (LONG-TERM TREATMENT)
     Route: 048
  4. COMIRNATY [Suspect]
     Active Substance: TOZINAMERAN
     Indication: COVID-19 immunisation
     Dosage: 2 DF, UNKNOWN FREQ.(D1+D2)
     Route: 030
     Dates: start: 20210718, end: 20210813
  5. COMIRNATY [Suspect]
     Active Substance: TOZINAMERAN
     Dosage: 1 DF, UNKNOWN FREQ. (D3)
     Route: 030
     Dates: start: 20210910, end: 20210910
  6. RENAGEL [Concomitant]
     Active Substance: SEVELAMER HYDROCHLORIDE
     Indication: Haemodialysis
     Dosage: UNK UNK, UNKNOWN FREQ.
     Route: 065
  7. ARANESP [Concomitant]
     Active Substance: DARBEPOETIN ALFA
     Indication: Nephrogenic anaemia
     Dosage: UNK UNK, UNKNOWN FREQ.
     Route: 065
  8. Calperos [Concomitant]
     Indication: Haemodialysis
     Dosage: UNK UNK, UNKNOWN FREQ.
     Route: 065
  9. CHOLECALCIFEROL [Concomitant]
     Active Substance: CHOLECALCIFEROL
     Indication: Haemodialysis
     Dosage: UNK UNK, UNKNOWN FREQ.
     Route: 065

REACTIONS (2)
  - Vaccination failure [Recovered/Resolved]
  - COVID-19 pneumonia [Recovered/Resolved]

NARRATIVE: CASE EVENT DATE: 20220111
